FAERS Safety Report 8949487 (Version 1)
Quarter: 2012Q4

REPORT INFORMATION
  Report Type: 
  Country: US (occurrence: US)
  Receive Date: 20121206
  Receipt Date: 20121206
  Transmission Date: 20130627
  Serious: Yes (Hospitalization, Other)
  Sender: FDA-Public Use
  Company Number: US-SANOFI-AVENTIS-2012SA087499

PATIENT
  Age: 99 Year
  Sex: Female
  Weight: 41 kg

DRUGS (1)
  1. PLAVIX [Suspect]
     Indication: PROPHYLAXIS
     Route: 048
     Dates: start: 2004, end: 2012

REACTIONS (6)
  - Pneumonia [Unknown]
  - Asthenia [Unknown]
  - Dysphagia [Not Recovered/Not Resolved]
  - Wrong technique in drug usage process [Unknown]
  - Bedridden [Unknown]
  - Body height decreased [Unknown]
